FAERS Safety Report 6328694-4 (Version None)
Quarter: 2009Q3

REPORT INFORMATION
  Report Type: 
  Country: None (occurrence: None)
  Receive Date: 20090826
  Receipt Date: 20090819
  Transmission Date: 20100115
  Serious: Yes (Other)
  Sender: FDA-Public Use
  Company Number: PHHY2009CA35498

PATIENT
  Sex: Female

DRUGS (1)
  1. DIOVAN [Suspect]
     Dosage: 1 TABLET (40 MG) PER DAY
     Route: 048
     Dates: start: 20090501, end: 20090724

REACTIONS (5)
  - BLOOD POTASSIUM INCREASED [None]
  - DIARRHOEA [None]
  - DIZZINESS [None]
  - FAECAL INCONTINENCE [None]
  - LOSS OF CONSCIOUSNESS [None]
